FAERS Safety Report 5252865-1 (Version None)
Quarter: 2007Q1

REPORT INFORMATION
  Report Type: 
  Country: None (occurrence: None)
  Receive Date: 20070227
  Receipt Date: 20070212
  Transmission Date: 20070707
  Serious: Yes (Hospitalization)
  Sender: FDA-Public Use
  Company Number: S07-FRA-00797-01

PATIENT
  Age: 47 Year
  Sex: Female

DRUGS (2)
  1. SEROPLEX (ESCITALOPRAM) [Suspect]
     Indication: DEPRESSION
     Dosage: 30 MG QD PO
     Route: 048
  2. SEROPLEX (ESCITALOPRAM) [Suspect]
     Indication: DEPRESSION
     Dosage: 20 MG QD PO
     Route: 048

REACTIONS (2)
  - CONVULSION [None]
  - PRESCRIBED OVERDOSE [None]
